FAERS Safety Report 13915556 (Version 1)
Quarter: 2017Q3

REPORT INFORMATION
  Report Type: Spontaneous
  Country: DE (occurrence: DE)
  Receive Date: 20170829
  Receipt Date: 20170829
  Transmission Date: 20171127
  Serious: Yes (Hospitalization, Other)
  Sender: FDA-Public Use
  Company Number: DE-ORION CORPORATION ORION PHARMA-TREX2017-2636

PATIENT
  Age: 6 Month

DRUGS (6)
  1. THIOTEPA. [Suspect]
     Active Substance: THIOTEPA
     Route: 065
  2. METHOTREXATE. [Suspect]
     Active Substance: METHOTREXATE
     Indication: GRAFT VERSUS HOST DISEASE
     Route: 065
  3. TREOSULFAN [Suspect]
     Active Substance: TREOSULFAN
     Dosage: 12 G/M2 BODY SURFACE AREA
     Route: 065
  4. FLUDARABINE [Suspect]
     Active Substance: FLUDARABINE PHOSPHATE
     Route: 065
  5. CICLOSPORIN [Suspect]
     Active Substance: CYCLOSPORINE
     Indication: GRAFT VERSUS HOST DISEASE
     Route: 065
  6. ANTITHYMOCYTE IMMUNOGLOBULIN [Suspect]
     Active Substance: THYMOCYTE IMMUNE GLOBULIN NOS
     Indication: GRAFT VERSUS HOST DISEASE
     Dosage: 1/14/15/15 MG/KG
     Route: 065

REACTIONS (14)
  - Respiratory syncytial virus infection [Recovered/Resolved]
  - Nausea [Recovered/Resolved]
  - Mucosal toxicity [Recovered/Resolved]
  - Diarrhoea [Unknown]
  - Corona virus infection [Recovered/Resolved]
  - Vomiting [Recovered/Resolved]
  - Metabolic acidosis [Recovered/Resolved]
  - Adenovirus infection [Recovered/Resolved]
  - Bronchitis [Unknown]
  - Influenza [Recovered/Resolved]
  - Rotavirus infection [Recovered/Resolved]
  - Skin toxicity [Recovered/Resolved]
  - Renal function test abnormal [Recovered/Resolved]
  - Pyrexia [Unknown]
